FAERS Safety Report 14562080 (Version 1)
Quarter: 2018Q1

REPORT INFORMATION
  Report Type: Spontaneous
  Country: US (occurrence: US)
  Receive Date: 20180221
  Receipt Date: 20180221
  Transmission Date: 20180509
  Serious: No
  Sender: FDA-Public Use
  Company Number: None

PATIENT
  Age: 35 Year

DRUGS (2)
  1. RISPERDAL [Suspect]
     Active Substance: RISPERIDONE
     Dosage: ?          QUANTITY:AILING?AIRMAIL;?
  2. DEPAKOTE ER [Concomitant]
     Active Substance: DIVALPROEX SODIUM

REACTIONS (2)
  - Feeling abnormal [None]
  - Dry mouth [None]

NARRATIVE: CASE EVENT DATE: 20170811
